FAERS Safety Report 20172421 (Version 5)
Quarter: 2022Q1

REPORT INFORMATION
  Report Type: Report from Study
  Country: US (occurrence: US)
  Receive Date: 20211210
  Receipt Date: 20220321
  Transmission Date: 20220424
  Serious: Yes (Hospitalization, Other)
  Sender: FDA-Public Use
  Company Number: US-MYOVANT SCIENCES IRELAND LIMITED-2021MYSCI1100156

PATIENT
  Age: 70 Year
  Sex: Male

DRUGS (6)
  1. ORGOVYX [Suspect]
     Active Substance: RELUGOLIX
     Indication: Prostate cancer
     Dosage: 360 MILLIGRAM, ONE TIME DOSE
     Route: 048
  2. ORGOVYX [Suspect]
     Active Substance: RELUGOLIX
     Dosage: 120 MILLIGRAM, QD
     Route: 048
     Dates: start: 20210730
  3. ORGOVYX [Suspect]
     Active Substance: RELUGOLIX
     Dosage: 120 MILLIGRAM, QD
     Route: 048
  4. LISINOPRIL [Suspect]
     Active Substance: LISINOPRIL
     Indication: Blood pressure increased
     Dosage: 2.5 MILLIGRAM
     Route: 048
  5. LISINOPRIL [Suspect]
     Active Substance: LISINOPRIL
     Dosage: 5 MILLIGRAM
     Route: 048
  6. LISINOPRIL [Suspect]
     Active Substance: LISINOPRIL
     Dosage: 20 MILLIGRAM, BID
     Route: 065

REACTIONS (17)
  - Hypertension [Not Recovered/Not Resolved]
  - Pulmonary oedema [Unknown]
  - Loss of consciousness [Recovered/Resolved]
  - Silent myocardial infarction [Recovered/Resolved]
  - Insomnia [Unknown]
  - Dyspnoea [Not Recovered/Not Resolved]
  - Oedema peripheral [Not Recovered/Not Resolved]
  - Respiratory tract infection [Unknown]
  - Heart rate decreased [Unknown]
  - Wheezing [Unknown]
  - Urticaria [Unknown]
  - Rash [Unknown]
  - Pruritus [Unknown]
  - Blood potassium decreased [Unknown]
  - COVID-19 [Unknown]
  - Asthenia [Recovered/Resolved]
  - Product dose omission issue [Recovered/Resolved]

NARRATIVE: CASE EVENT DATE: 20211101
